FAERS Safety Report 18444151 (Version 5)
Quarter: 2022Q2

REPORT INFORMATION
  Report Type: Spontaneous
  Country: US (occurrence: US)
  Receive Date: 20201030
  Receipt Date: 20220418
  Transmission Date: 20220720
  Serious: Yes (Hospitalization, Other)
  Sender: FDA-Public Use
  Company Number: US-GILEAD-2020-0501810

PATIENT
  Age: 60 Year
  Sex: Male
  Weight: 68.481 kg

DRUGS (37)
  1. COMPLERA [Suspect]
     Active Substance: EMTRICITABINE\RILPIVIRINE HYDROCHLORIDE\TENOFOVIR DISOPROXIL FUMARATE
     Indication: HIV infection
     Dosage: UNK
     Route: 048
     Dates: start: 201101, end: 201707
  2. COMPLERA [Suspect]
     Active Substance: EMTRICITABINE\RILPIVIRINE HYDROCHLORIDE\TENOFOVIR DISOPROXIL FUMARATE
     Dosage: UNK
     Route: 065
     Dates: start: 20110901, end: 20170109
  3. COMPLERA [Suspect]
     Active Substance: EMTRICITABINE\RILPIVIRINE HYDROCHLORIDE\TENOFOVIR DISOPROXIL FUMARATE
     Dosage: UNK
     Route: 065
     Dates: start: 201109, end: 20170720
  4. ATRIPLA [Suspect]
     Active Substance: EFAVIRENZ\EMTRICITABINE\TENOFOVIR DISOPROXIL FUMARATE
     Indication: HIV infection
     Dosage: UNK
     Route: 065
     Dates: start: 20110805
  5. TRUVADA [Suspect]
     Active Substance: EMTRICITABINE\TENOFOVIR DISOPROXIL FUMARATE
     Indication: HIV infection
     Dosage: UNK
     Route: 065
     Dates: start: 2011, end: 2013
  6. TRUVADA [Suspect]
     Active Substance: EMTRICITABINE\TENOFOVIR DISOPROXIL FUMARATE
     Dosage: UNK
     Route: 065
     Dates: start: 20110322, end: 2011
  7. ODEFSEY [Concomitant]
     Active Substance: EMTRICITABINE\RILPIVIRINE HYDROCHLORIDE\TENOFOVIR ALAFENAMIDE FUMARATE
  8. TYLENOL [Concomitant]
     Active Substance: ACETAMINOPHEN
  9. ACYCLOVIR [Concomitant]
     Active Substance: ACYCLOVIR
  10. BACTRIM [Concomitant]
     Active Substance: SULFAMETHOXAZOLE\TRIMETHOPRIM
  11. PENICILLIN [Concomitant]
     Active Substance: PENICILLIN
  12. PRAVASTATIN [Concomitant]
     Active Substance: PRAVASTATIN
  13. PREZISTA [Concomitant]
     Active Substance: DARUNAVIR ETHANOLATE
  14. REYATAZ [Concomitant]
     Active Substance: ATAZANAVIR SULFATE
  15. HYOSCYAMINE SULFATE [Concomitant]
     Active Substance: HYOSCYAMINE SULFATE
  16. PROMETHAZINE [Concomitant]
     Active Substance: PROMETHAZINE HYDROCHLORIDE
  17. LAMOTRIGINE [Concomitant]
     Active Substance: LAMOTRIGINE
  18. VALACYCLOVIR [Concomitant]
     Active Substance: VALACYCLOVIR HYDROCHLORIDE
  19. NUVIGIL [Concomitant]
     Active Substance: ARMODAFINIL
  20. ARMODAFINIL [Concomitant]
     Active Substance: ARMODAFINIL
  21. DRONABINOL [Concomitant]
     Active Substance: DRONABINOL
  22. TIZANIDINE [Concomitant]
     Active Substance: TIZANIDINE
  23. SUMATRIPTAN [Concomitant]
     Active Substance: SUMATRIPTAN
  24. TAMSULOSIN [Concomitant]
     Active Substance: TAMSULOSIN
  25. CEPHALEXIN [Concomitant]
     Active Substance: CEPHALEXIN
  26. DOXYCYCLINE HYCLATE [Concomitant]
     Active Substance: DOXYCYCLINE HYCLATE
  27. CIPROFLOXACIN [Concomitant]
     Active Substance: CIPROFLOXACIN
  28. CREON [Concomitant]
     Active Substance: PANCRELIPASE AMYLASE\PANCRELIPASE LIPASE\PANCRELIPASE PROTEASE
  29. ITRACONAZOLE [Concomitant]
     Active Substance: ITRACONAZOLE
  30. ONDANSETRON [Concomitant]
     Active Substance: ONDANSETRON
  31. ACETAZOLAMIDE [Concomitant]
     Active Substance: ACETAZOLAMIDE
  32. AZITHROMYCIN [Concomitant]
     Active Substance: AZITHROMYCIN
  33. GABAPENTIN [Concomitant]
     Active Substance: GABAPENTIN
  34. NYSTATIN ACTAVIS [Concomitant]
  35. WELCHOL [Concomitant]
     Active Substance: COLESEVELAM HYDROCHLORIDE
  36. ZOLPIDEM [Concomitant]
     Active Substance: ZOLPIDEM TARTRATE
  37. HYOSCYAMINE [Concomitant]
     Active Substance: HYOSCYAMINE

REACTIONS (25)
  - Multiple fractures [Not Recovered/Not Resolved]
  - Chronic kidney disease [Not Recovered/Not Resolved]
  - Renal injury [Not Recovered/Not Resolved]
  - Osteoporosis [Not Recovered/Not Resolved]
  - Hip fracture [Not Recovered/Not Resolved]
  - Femur fracture [Unknown]
  - Thoracic vertebral fracture [Not Recovered/Not Resolved]
  - Spinal compression fracture [Not Recovered/Not Resolved]
  - Bone density decreased [Unknown]
  - Glomerular filtration rate increased [Not Recovered/Not Resolved]
  - Osteopenia [Not Recovered/Not Resolved]
  - Rib fracture [Unknown]
  - Wrist fracture [Unknown]
  - Fall [Unknown]
  - Tooth loss [Unknown]
  - Hypokinesia [Unknown]
  - Emotional distress [Not Recovered/Not Resolved]
  - Anxiety [Not Recovered/Not Resolved]
  - Pain [Not Recovered/Not Resolved]
  - Fracture pain [Not Recovered/Not Resolved]
  - Depression [Not Recovered/Not Resolved]
  - Blood creatinine increased [Not Recovered/Not Resolved]
  - Jaw disorder [Unknown]
  - Insomnia [Not Recovered/Not Resolved]
  - Renal function test abnormal [Unknown]

NARRATIVE: CASE EVENT DATE: 20140101
